FAERS Safety Report 23483264 (Version 1)
Quarter: 2024Q1

REPORT INFORMATION
  Report Type: Spontaneous
  Country: US (occurrence: US)
  Receive Date: 20240205
  Receipt Date: 20240205
  Transmission Date: 20240410
  Serious: Yes (Life-Threatening, Other)
  Sender: FDA-Public Use
  Company Number: US-PFIZER INC-202400028780

PATIENT
  Age: 19 Year
  Sex: Female

DRUGS (5)
  1. INFLIXIMAB [Suspect]
     Active Substance: INFLIXIMAB
     Indication: Acute graft versus host disease
     Dosage: UNK
  2. CAMPATH [Suspect]
     Active Substance: ALEMTUZUMAB
     Indication: Therapeutic procedure
     Dosage: UNK
  3. FLUDARABINE [Suspect]
     Active Substance: FLUDARABINE PHOSPHATE
     Indication: Therapeutic procedure
     Dosage: UNK
  4. THIOTEPA [Concomitant]
     Active Substance: THIOTEPA
     Indication: Therapeutic procedure
     Dosage: UNK
  5. MELPHALAN [Concomitant]
     Active Substance: MELPHALAN
     Indication: Therapeutic procedure
     Dosage: UNK

REACTIONS (2)
  - Off label use [Unknown]
  - Drug ineffective for unapproved indication [Unknown]
